FAERS Safety Report 6315609-8 (Version None)
Quarter: 2009Q3

REPORT INFORMATION
  Report Type: 
  Country: None (occurrence: None)
  Receive Date: 20090818
  Receipt Date: 20090804
  Transmission Date: 20100115
  Serious: No
  Sender: FDA-Public Use
  Company Number: 001023

PATIENT
  Sex: Male

DRUGS (3)
  1. VIMPAT [Suspect]
     Indication: EPILEPSY
     Dosage: (50 MG BID ORAL) ; (100 MG BID ORAL)
     Route: 048
     Dates: start: 20081224, end: 20090106
  2. VIMPAT [Suspect]
     Indication: EPILEPSY
     Dosage: (50 MG BID ORAL) ; (100 MG BID ORAL)
     Route: 048
     Dates: start: 20090107, end: 20090407
  3. LAMOTRIGINE [Concomitant]

REACTIONS (2)
  - CONVULSION [None]
  - DYSPNOEA [None]
